FAERS Safety Report 6616782-4 (Version None)
Quarter: 2010Q1

REPORT INFORMATION
  Report Type: 
  Country: None (occurrence: None)
  Receive Date: 20100305
  Receipt Date: 20100225
  Transmission Date: 20100710
  Serious: Yes (Hospitalization)
  Sender: FDA-Public Use
  Company Number: US-ABBOTT-10P-163-0629195-00

PATIENT
  Sex: Male
  Weight: 62.198 kg

DRUGS (4)
  1. HUMIRA [Suspect]
     Indication: CROHN'S DISEASE
     Dates: start: 20090101
  2. LISINOPRIL [Concomitant]
     Indication: HYPERTENSION
  3. ATIVAN [Concomitant]
     Indication: ANXIETY
  4. CARVEDILOL [Concomitant]
     Indication: HYPERTENSION

REACTIONS (2)
  - DEEP VEIN THROMBOSIS [None]
  - HYPOAESTHESIA [None]
